FAERS Safety Report 10211385 (Version 2)
Quarter: 2014Q2

REPORT INFORMATION
  Report Type: Report from Study
  Country: MX (occurrence: MX)
  Receive Date: 20140602
  Receipt Date: 20140602
  Transmission Date: 20141212
  Serious: Yes (Other)
  Sender: FDA-Public Use
  Company Number: PHHY2011MX24327

PATIENT
  Age: 44 Year
  Sex: Female

DRUGS (4)
  1. ACLASTA [Suspect]
     Indication: OSTEOPOROSIS
     Dosage: 5 MG/100 ML PER YEAR
     Route: 042
     Dates: start: 201005
  2. ACLASTA [Suspect]
     Indication: OFF LABEL USE
     Dosage: 5 MG/100 ML ANNUAL
     Route: 042
  3. ACLASTA [Suspect]
     Dosage: 5 MG/100 ML ANNUAL
     Route: 042
  4. ACLASTA [Suspect]
     Dosage: 5 MG/100 ML ANNUAL
     Route: 042

REACTIONS (7)
  - Spinal disorder [Not Recovered/Not Resolved]
  - Body temperature increased [Not Recovered/Not Resolved]
  - Myalgia [Not Recovered/Not Resolved]
  - Vomiting [Not Recovered/Not Resolved]
  - Malaise [Not Recovered/Not Resolved]
  - Muscle spasms [Not Recovered/Not Resolved]
  - Bone pain [Not Recovered/Not Resolved]
